FAERS Safety Report 23640214 (Version 3)
Quarter: 2025Q3

REPORT INFORMATION
  Report Type: Spontaneous
  Country: EU (occurrence: EU)
  Receive Date: 20240317
  Receipt Date: 20250919
  Transmission Date: 20251021
  Serious: Yes (Death, Life-Threatening, Hospitalization, Other)
  Sender: AUROBINDO
  Company Number: EU-AUROBINDO-AUR-APL-2024-011341

PATIENT
  Age: 86 Year
  Sex: Female

DRUGS (4)
  1. CEFTRIAXONE [Suspect]
     Active Substance: CEFTRIAXONE
     Indication: Leukocyturia
     Route: 065
  2. RISPERIDONE [Suspect]
     Active Substance: RISPERIDONE
     Indication: Mental disorder
     Route: 065
  3. RISPERIDONE [Suspect]
     Active Substance: RISPERIDONE
     Indication: Psychiatric care
  4. LORAZEPAM [Concomitant]
     Active Substance: LORAZEPAM
     Indication: Mental disorder
     Route: 065

REACTIONS (5)
  - Condition aggravated [Fatal]
  - Hepatitis acute [Fatal]
  - Drug-induced liver injury [Unknown]
  - Blood creatinine increased [Unknown]
  - Blood sodium increased [Unknown]
